FAERS Safety Report 23761880 (Version 1)
Quarter: 2024Q2

REPORT INFORMATION
  Report Type: Spontaneous
  Country: AU (occurrence: AU)
  Receive Date: 20240419
  Receipt Date: 20240419
  Transmission Date: 20240716
  Serious: Yes (Other)
  Sender: FDA-Public Use
  Company Number: AU-BAXTER-2024BAX016660

PATIENT
  Age: 57 Year
  Sex: Female
  Weight: 71.8 kg

DRUGS (30)
  1. DOXORUBICIN [Suspect]
     Active Substance: DOXORUBICIN
     Indication: Diffuse large B-cell lymphoma
     Route: 065
  2. DOXORUBICIN [Suspect]
     Active Substance: DOXORUBICIN
     Dosage: UNK
     Route: 065
     Dates: start: 20220602, end: 20220901
  3. CYCLOPHOSPHAMIDE [Suspect]
     Active Substance: CYCLOPHOSPHAMIDE
     Indication: Diffuse large B-cell lymphoma
     Route: 065
  4. CYCLOPHOSPHAMIDE [Suspect]
     Active Substance: CYCLOPHOSPHAMIDE
     Dosage: UNK
     Route: 065
     Dates: start: 20220602, end: 20220901
  5. IFOSFAMIDE [Suspect]
     Active Substance: IFOSFAMIDE
     Indication: Diffuse large B-cell lymphoma
     Route: 065
  6. IFOSFAMIDE [Suspect]
     Active Substance: IFOSFAMIDE
     Dosage: UNK
     Route: 065
     Dates: start: 20221201, end: 20230101
  7. BENDAMUSTINE HYDROCHLORIDE [Suspect]
     Active Substance: BENDAMUSTINE HYDROCHLORIDE
     Indication: Diffuse large B-cell lymphoma
     Dosage: UNK
     Route: 065
     Dates: start: 20220101, end: 20220601
  8. CARBOPLATIN [Suspect]
     Active Substance: CARBOPLATIN
     Indication: Diffuse large B-cell lymphoma
     Dosage: UNK
     Route: 065
  9. CISPLATIN [Suspect]
     Active Substance: CISPLATIN
     Indication: Diffuse large B-cell lymphoma
     Route: 065
  10. CISPLATIN [Suspect]
     Active Substance: CISPLATIN
     Dosage: UNK
     Route: 065
     Dates: start: 20220902, end: 20221001
  11. CYTARABINE [Suspect]
     Active Substance: CYTARABINE
     Indication: Diffuse large B-cell lymphoma
     Dosage: UNK
     Route: 065
  12. CYTARABINE [Suspect]
     Active Substance: CYTARABINE
     Dosage: UNK
     Route: 065
     Dates: start: 20221201, end: 20230101
  13. DEXAMETHASONE [Suspect]
     Active Substance: DEXAMETHASONE
     Indication: Diffuse large B-cell lymphoma
     Route: 065
  14. DEXAMETHASONE [Suspect]
     Active Substance: DEXAMETHASONE
     Dosage: UNK
     Route: 065
     Dates: start: 20220902, end: 20221001
  15. ETOPOSIDE [Suspect]
     Active Substance: ETOPOSIDE
     Indication: Diffuse large B-cell lymphoma
     Route: 065
  16. ETOPOSIDE [Suspect]
     Active Substance: ETOPOSIDE
     Dosage: UNK
     Route: 065
     Dates: start: 20221201, end: 20230101
  17. GEMCITABINE HYDROCHLORIDE [Suspect]
     Active Substance: GEMCITABINE HYDROCHLORIDE
     Dosage: UNK
     Route: 065
     Dates: start: 20220902, end: 20221001
  18. PREDNISOLONE [Suspect]
     Active Substance: PREDNISOLONE
     Indication: Diffuse large B-cell lymphoma
     Route: 065
  19. PREDNISONE [Suspect]
     Active Substance: PREDNISONE
     Dosage: UNK
     Route: 065
     Dates: start: 20220206, end: 20220901
  20. RITUXIMAB [Suspect]
     Active Substance: RITUXIMAB
     Indication: Diffuse large B-cell lymphoma
     Dosage: UNK
     Route: 065
     Dates: start: 20220101, end: 20220106
  21. RITUXIMAB [Suspect]
     Active Substance: RITUXIMAB
     Dosage: UNK
     Route: 065
     Dates: start: 20220602, end: 20220901
  22. RITUXIMAB [Suspect]
     Active Substance: RITUXIMAB
     Dosage: UNK
     Route: 065
     Dates: start: 20220902, end: 20221001
  23. RITUXIMAB [Suspect]
     Active Substance: RITUXIMAB
     Dosage: UNK
     Route: 065
     Dates: start: 20221201, end: 20230101
  24. RITUXIMAB [Suspect]
     Active Substance: RITUXIMAB
     Dosage: UNK
     Route: 065
  25. VINCRISTINE SULFATE [Suspect]
     Active Substance: VINCRISTINE SULFATE
     Indication: Diffuse large B-cell lymphoma
     Dosage: UNK
     Route: 065
  26. VINCRISTINE SULFATE [Suspect]
     Active Substance: VINCRISTINE SULFATE
     Dosage: UNK
     Route: 065
     Dates: start: 20220602, end: 20220901
  27. ATOVAQUONE [Concomitant]
     Active Substance: ATOVAQUONE
     Route: 065
  28. MAGNESIUM [Concomitant]
     Active Substance: MAGNESIUM
     Route: 065
  29. PANTOPRAZOLE SODIUM [Concomitant]
     Active Substance: PANTOPRAZOLE SODIUM
     Route: 065
  30. VALACYCLOVIR HYDROCHLORIDE [Concomitant]
     Active Substance: VALACYCLOVIR HYDROCHLORIDE
     Route: 065

REACTIONS (1)
  - Disease progression [Unknown]
